FAERS Safety Report 10615755 (Version 2)
Quarter: 2015Q2

REPORT INFORMATION
  Report Type: Report from Study
  Country: CA (occurrence: CA)
  Receive Date: 20141201
  Receipt Date: 20150402
  Transmission Date: 20150821
  Serious: Yes (Other)
  Sender: FDA-Public Use
  Company Number: CA-JNJFOC-20141113449

PATIENT
  Sex: Female
  Weight: 72 kg

DRUGS (3)
  1. REMICADE [Suspect]
     Active Substance: INFLIXIMAB
     Indication: CROHN^S DISEASE
     Route: 042
     Dates: start: 2013
  2. IRON [Concomitant]
     Active Substance: IRON
     Route: 065
  3. IMURAN [Concomitant]
     Active Substance: AZATHIOPRINE
     Route: 065

REACTIONS (2)
  - Mastication disorder [Not Recovered/Not Resolved]
  - Jaw fracture [Not Recovered/Not Resolved]

NARRATIVE: CASE EVENT DATE: 2014
